FAERS Safety Report 18797897 (Version 1)
Quarter: 2021Q1

REPORT INFORMATION
  Report Type: Report from Study
  Country: MX (occurrence: MX)
  Receive Date: 20210128
  Receipt Date: 20210128
  Transmission Date: 20210419
  Serious: Yes (Death)
  Sender: FDA-Public Use
  Company Number: MX-UCBSA-2021003567

PATIENT
  Age: 91 Year
  Sex: Male

DRUGS (3)
  1. EPAMIN [PHENYTOIN] [Concomitant]
     Indication: EPILEPSY
     Dosage: 1 DOSAGE FORM, 2X/DAY (BID)
     Route: 048
     Dates: end: 20190309
  2. LEVETIRACETAM. [Suspect]
     Active Substance: LEVETIRACETAM
     Indication: EPILEPSY
     Dosage: 1 DOSAGE FORM, ONCE DAILY (QD)
     Route: 048
     Dates: start: 2006
  3. LEVETIRACETAM. [Suspect]
     Active Substance: LEVETIRACETAM
     Dosage: 1 DOSAGE FORM, 2X/DAY (BID)
     Route: 048
     Dates: end: 20190309

REACTIONS (3)
  - Infarction [Fatal]
  - Drug ineffective [Unknown]
  - Product use issue [Unknown]

NARRATIVE: CASE EVENT DATE: 2006
